FAERS Safety Report 16100502 (Version 3)
Quarter: 2019Q2

REPORT INFORMATION
  Report Type: Spontaneous
  Country: JP (occurrence: JP)
  Receive Date: 20190321
  Receipt Date: 20190618
  Transmission Date: 20190711
  Serious: Yes (Other)
  Sender: FDA-Public Use
  Company Number: JP-ROCHE-2287040

PATIENT
  Age: 85 Year
  Sex: Female

DRUGS (6)
  1. MEDICON [DEXTROMETHORPHAN HYDROBROMIDE] [Suspect]
     Active Substance: DEXTROMETHORPHAN HYDROBROMIDE
     Indication: UPPER RESPIRATORY TRACT INFLAMMATION
     Route: 048
     Dates: start: 20190115, end: 20190117
  2. MUCODYNE [Suspect]
     Active Substance: CARBOCYSTEINE
     Indication: UPPER RESPIRATORY TRACT INFLAMMATION
     Route: 048
     Dates: start: 20190115, end: 20190117
  3. XOFLUZA [Suspect]
     Active Substance: BALOXAVIR MARBOXIL
     Indication: INFLUENZA
     Route: 048
     Dates: start: 20190115
  4. CALONAL [Suspect]
     Active Substance: ACETAMINOPHEN
     Indication: INFLUENZA
     Route: 048
     Dates: start: 20190115, end: 20190117
  5. VALSARTAN. [Concomitant]
     Active Substance: VALSARTAN
     Route: 048
  6. REMINYL [Concomitant]
     Active Substance: GALANTAMINE
     Route: 048

REACTIONS (1)
  - Hypernatraemia [Recovered/Resolved]

NARRATIVE: CASE EVENT DATE: 20190119
